FAERS Safety Report 9105429 (Version 1)
Quarter: 2013Q1

REPORT INFORMATION
  Report Type: Report from Study
  Country: GR (occurrence: GR)
  Receive Date: 20130220
  Receipt Date: 20130220
  Transmission Date: 20140127
  Serious: Yes (Life-Threatening)
  Sender: FDA-Public Use
  Company Number: GR-US-EMD SERONO, INC.-7194037

PATIENT
  Age: 62 Year
  Sex: Male

DRUGS (7)
  1. REBIF [Suspect]
     Indication: MULTIPLE SCLEROSIS
     Route: 058
     Dates: start: 200012
  2. ATROST [Concomitant]
     Indication: HYPERTENSION
     Route: 048
  3. ATROST [Concomitant]
     Indication: HYPERCHOLESTEROLAEMIA
  4. TRIATEC PLUS [Concomitant]
     Indication: HYPERTENSION
     Route: 048
  5. TRIATEC PLUS [Concomitant]
     Indication: HYPERCHOLESTEROLAEMIA
  6. CARVEPEN [Concomitant]
     Indication: HYPERTENSION
     Route: 048
  7. CARVEPEN [Concomitant]
     Indication: HYPERCHOLESTEROLAEMIA

REACTIONS (1)
  - Coronary artery disease [Not Recovered/Not Resolved]
